FAERS Safety Report 21588764 (Version 1)
Quarter: 2022Q4

REPORT INFORMATION
  Report Type: Spontaneous
  Country: US (occurrence: None)
  Receive Date: 20221110
  Receipt Date: 20221110
  Transmission Date: 20230113
  Serious: Yes (Hospitalization)
  Sender: FDA-Public Use
  Company Number: None

PATIENT
  Sex: Female

DRUGS (14)
  1. ENBREL [Suspect]
     Active Substance: ETANERCEPT
     Dosage: FREQUENCY : WEEKLY;?
     Route: 058
     Dates: start: 20220112
  2. ENBREL [Suspect]
     Active Substance: ETANERCEPT
     Dosage: FREQUENCY : WEEKLY;?
     Route: 058
  3. ACTONEL [Concomitant]
     Active Substance: RISEDRONATE SODIUM
  4. ANSAID [Concomitant]
     Active Substance: FLURBIPROFEN
  5. CALCIUM [Concomitant]
     Active Substance: CALCIUM
  6. FLONASE SPR [Concomitant]
  7. LASIX [Concomitant]
     Active Substance: FUROSEMIDE
  8. METHYLPRED POW [Concomitant]
  9. MULTI-VITAMIN [Concomitant]
     Active Substance: .ALPHA.-TOCOPHEROL ACETATE, DL-\ASCORBIC ACID\CYANOCOBALAMIN\FLUORIDE ION\FOLIC ACID\NIACIN\PYRIDOXI
  10. OPSUMIT [Concomitant]
     Active Substance: MACITENTAN
  11. POTASSIUM [Concomitant]
     Active Substance: POTASSIUM
  12. PREDNISONE [Concomitant]
     Active Substance: PREDNISONE
  13. SILDENAFIL [Concomitant]
     Active Substance: SILDENAFIL
  14. VELERTRI [Concomitant]

REACTIONS (3)
  - Product dose omission issue [None]
  - Therapy non-responder [None]
  - Clostridium difficile infection [None]
